FAERS Safety Report 11640133 (Version 1)
Quarter: 2015Q4

REPORT INFORMATION
  Report Type: Spontaneous
  Country: US (occurrence: None)
  Receive Date: 20151016
  Receipt Date: 20151016
  Transmission Date: 20160304
  Serious: Yes (Other)
  Sender: FDA-Public Use
  Company Number: None

PATIENT
  Age: 42 Year
  Sex: Male
  Weight: 102.06 kg

DRUGS (1)
  1. DULOXETINE 60MG TEVA [Suspect]
     Active Substance: DULOXETINE
     Indication: INTERVERTEBRAL DISC PROTRUSION
     Dosage: 1 PILL
     Route: 048
     Dates: start: 20150926, end: 20151015

REACTIONS (7)
  - Paraesthesia [None]
  - Nausea [None]
  - Drug withdrawal syndrome [None]
  - Drug effect decreased [None]
  - Suicidal ideation [None]
  - Nightmare [None]
  - Back pain [None]

NARRATIVE: CASE EVENT DATE: 20151015
